FAERS Safety Report 22536193 (Version 1)
Quarter: 2023Q2

REPORT INFORMATION
  Report Type: Spontaneous
  Country: US (occurrence: None)
  Receive Date: 20230607
  Receipt Date: 20230607
  Transmission Date: 20230721
  Serious: No
  Sender: FDA-Public Use
  Company Number: None

PATIENT
  Sex: Male

DRUGS (12)
  1. ABIRATERONE ACETATE [Suspect]
     Active Substance: ABIRATERONE ACETATE
     Indication: Prostate cancer
     Dosage: OTHER QUANTITY : 4T;?FREQUENCY : DAILY;?
     Route: 048
     Dates: start: 20230303
  2. PREDNISONE [Suspect]
     Active Substance: PREDNISONE
     Indication: Prostate cancer
     Dosage: OTHER QUANTITY : 1T;?FREQUENCY : TWICE A DAY;?
     Route: 048
     Dates: start: 20230303
  3. AMLODIPINE [Concomitant]
  4. ELIQUIS [Concomitant]
     Active Substance: APIXABAN
  5. LUPRON [Concomitant]
  6. OLOPATADINE [Concomitant]
  7. PREDNISONE [Concomitant]
  8. XGEVA [Concomitant]
     Active Substance: DENOSUMAB
  9. IBUPROFEN [Concomitant]
  10. STOOL SOFTENER (DOCUSATE) [Concomitant]
     Active Substance: DOCUSATE
  11. GABAPENTIN [Concomitant]
  12. XTANDI [Concomitant]
     Active Substance: ENZALUTAMIDE

REACTIONS (2)
  - Constipation [None]
  - Gastrointestinal haemorrhage [None]
